FAERS Safety Report 6897049-6 (Version None)
Quarter: 2010Q3

REPORT INFORMATION
  Report Type: 
  Country: None (occurrence: None)
  Receive Date: 20100802
  Receipt Date: 20100721
  Transmission Date: 20110219
  Serious: Yes (Other)
  Sender: FDA-Public Use
  Company Number: BR-GENENTECH-304642

PATIENT
  Sex: Female
  Weight: 57 kg

DRUGS (8)
  1. MABTHERA [Suspect]
     Indication: RHEUMATOID ARTHRITIS
     Dosage: UNK
     Route: 065
  2. ACTEMRA [Suspect]
     Indication: RHEUMATOID ARTHRITIS
     Dosage: 480 MG, UNK
     Route: 042
     Dates: start: 20100610
  3. PREDNISONE [Concomitant]
     Indication: RHEUMATOID ARTHRITIS
     Dosage: UNK
     Route: 048
     Dates: start: 19950101
  4. METHOTREXATE [Concomitant]
     Indication: RHEUMATOID ARTHRITIS
     Dosage: 12.5 MG, UNK
     Route: 048
     Dates: start: 19950101
  5. FOLIC ACID [Concomitant]
     Indication: PROPHYLAXIS
     Dosage: 5 MG, 5/WEEK
     Route: 048
     Dates: start: 19950101
  6. ETORICOXIB [Concomitant]
     Indication: RHEUMATOID ARTHRITIS
     Dosage: UNK
     Route: 048
     Dates: start: 20090101
  7. ALENDRONIC ACID [Concomitant]
     Indication: OSTEOPENIA
     Dosage: 70 MG, UNK
     Route: 048
     Dates: start: 20080101
  8. PANTOPRAZOLE [Concomitant]
     Indication: GASTRITIS
     Dosage: UNK
     Route: 048
     Dates: start: 20000101

REACTIONS (3)
  - ARTHRITIS [None]
  - DRUG INEFFECTIVE [None]
  - GAIT DISTURBANCE [None]
